FAERS Safety Report 8962342 (Version 1)
Quarter: 2012Q4

REPORT INFORMATION
  Report Type: Spontaneous
  Country: US (occurrence: None)
  Receive Date: 20121211
  Receipt Date: 20121211
  Transmission Date: 20130627
  Serious: Yes (Life-Threatening, Hospitalization, Other)
  Sender: FDA-Public Use
  Company Number: None

PATIENT
  Age: 78 Year
  Sex: Female

DRUGS (1)
  1. CALCITONEN - SALMON PAR [Suspect]
     Indication: OSTEOPOROSIS
     Route: 045
     Dates: start: 20120801, end: 20120814

REACTIONS (9)
  - Diabetes mellitus inadequate control [None]
  - Bronchitis [None]
  - Dyspnoea [None]
  - Heart rate increased [None]
  - Rash [None]
  - Fatigue [None]
  - Muscle spasms [None]
  - Pneumonia [None]
  - Cough [None]
